FAERS Safety Report 10296704 (Version 1)
Quarter: 2014Q3

REPORT INFORMATION
  Report Type: Spontaneous
  Country: US (occurrence: None)
  Receive Date: 20140708
  Receipt Date: 20140708
  Transmission Date: 20150326
  Serious: Yes (Life-Threatening, Disabling)
  Sender: FDA-Public Use
  Company Number: None

PATIENT
  Age: 40 Year
  Sex: Male
  Weight: 95.26 kg

DRUGS (6)
  1. COPPERTONE CLEARLY SHEER FOR BEACH AND POOL SPF 50 PLUS [Suspect]
     Active Substance: AVOBENZONE\HOMOSALATE\OCTISALATE\OCTOCRYLENE\OXYBENZONE
     Indication: PROPHYLAXIS
     Dosage: AS NEEDED, APPLIED TO A SURFACE, USUALLY THE SKIN
     Dates: start: 20140701, end: 20140705
  2. COPPERTONE CLEARLY SHEER FOR BEACH AND POOL SPF 50 PLUS [Suspect]
     Active Substance: AVOBENZONE\HOMOSALATE\OCTISALATE\OCTOCRYLENE\OXYBENZONE
     Indication: PHOTOSENSITIVITY REACTION
     Dosage: AS NEEDED, APPLIED TO A SURFACE, USUALLY THE SKIN
     Dates: start: 20140701, end: 20140705
  3. COPPERTONE SPORT HIGH PERFORMANCE SPF 30 [Suspect]
     Active Substance: AVOBENZONE\HOMOSALATE\OCTISALATE\OCTOCRYLENE
     Indication: PHOTOSENSITIVITY REACTION
     Dosage: AS NEEDED, APPLIED TO A SURFACE, USUALLY THE SKIN
     Dates: start: 20140706, end: 20140707
  4. COPPERTONE SPORT HIGH PERFORMANCE SPF 30 [Suspect]
     Active Substance: AVOBENZONE\HOMOSALATE\OCTISALATE\OCTOCRYLENE
     Indication: PROPHYLAXIS
     Dosage: AS NEEDED, APPLIED TO A SURFACE, USUALLY THE SKIN
     Dates: start: 20140706, end: 20140707
  5. BENADRYL [Concomitant]
     Active Substance: DIPHENHYDRAMINE HYDROCHLORIDE
  6. EPIPEN [Concomitant]
     Active Substance: EPINEPHRINE

REACTIONS (1)
  - Drug hypersensitivity [None]

NARRATIVE: CASE EVENT DATE: 20140706
